FAERS Safety Report 9459594 (Version 1)
Quarter: 2013Q3

REPORT INFORMATION
  Report Type: Spontaneous
  Country: US (occurrence: US)
  Receive Date: 20130815
  Receipt Date: 20130815
  Transmission Date: 20140515
  Serious: Yes (Other)
  Sender: FDA-Public Use
  Company Number: US-AMGEN-USASP2013056232

PATIENT
  Age: 62 Year
  Sex: Male
  Weight: 104.31 kg

DRUGS (10)
  1. ENBREL [Suspect]
     Indication: PRODUCT USED FOR UNKNOWN INDICATION
     Dosage: 50 MG/ML, 2 TIMES/WK
     Route: 058
  2. TRAVATAN [Concomitant]
     Dosage: 0.004 %, UNK
  3. CLOBETASOL [Concomitant]
     Dosage: 0.05 %, UNK
  4. GEMFIBROZIL [Concomitant]
     Dosage: 600 MG, UNK
  5. COMBGEN [Concomitant]
     Dosage: UNK
  6. VITAMIN C                          /00008001/ [Concomitant]
     Dosage: 500 MG, UNK
  7. BABY ASPIRIN [Concomitant]
     Dosage: 81 MG, UNK
  8. MULTIVITAMINS, PLAIN [Concomitant]
     Dosage: UNK
  9. FISH OIL [Concomitant]
     Dosage: UNK
  10. VIAGRA [Concomitant]
     Dosage: 25 MG, UNK

REACTIONS (2)
  - Pneumonia [Unknown]
  - Nasopharyngitis [Unknown]
